FAERS Safety Report 4586174-0 (Version None)
Quarter: 2005Q1

REPORT INFORMATION
  Report Type: 
  Country: None (occurrence: None)
  Receive Date: 20050125
  Receipt Date: 20041018
  Transmission Date: 20050727
  Serious: No
  Sender: FDA-Public Use
  Company Number: USA041081573

PATIENT
  Age: 90 Year
  Sex: Female
  Weight: 82 kg

DRUGS (1)
  1. FORTEO [Suspect]
     Indication: BONE DISORDER
     Dates: start: 20040401

REACTIONS (4)
  - INSOMNIA [None]
  - MEMORY IMPAIRMENT [None]
  - MOBILITY DECREASED [None]
  - PAIN IN EXTREMITY [None]
